FAERS Safety Report 13639304 (Version 1)
Quarter: 2017Q2

REPORT INFORMATION
  Report Type: Spontaneous
  Country: US (occurrence: US)
  Receive Date: 20170609
  Receipt Date: 20170609
  Transmission Date: 20170830
  Serious: No
  Sender: FDA-Public Use
  Company Number: US-ROCHE-1485760

PATIENT
  Sex: Female

DRUGS (4)
  1. KLONOPIN [Suspect]
     Active Substance: CLONAZEPAM
     Indication: ANXIETY
     Dosage: DAILY
     Route: 048
  2. KLONOPIN [Suspect]
     Active Substance: CLONAZEPAM
     Indication: DEPRESSION
     Dosage: DAILY
     Route: 048
  3. CLONAZEPAM. [Suspect]
     Active Substance: CLONAZEPAM
     Indication: ANXIETY
     Route: 065
  4. CLONAZEPAM. [Suspect]
     Active Substance: CLONAZEPAM
     Indication: DEPRESSION

REACTIONS (10)
  - Treatment noncompliance [Unknown]
  - Fatigue [Unknown]
  - Feeling abnormal [Unknown]
  - Suicidal ideation [Unknown]
  - Depressed mood [Recovered/Resolved]
  - Withdrawal syndrome [Unknown]
  - Apathy [Unknown]
  - Amnesia [Unknown]
  - Memory impairment [Unknown]
  - Crying [Unknown]
